FAERS Safety Report 12095003 (Version 1)
Quarter: 2016Q1

REPORT INFORMATION
  Report Type: Spontaneous
  Country: IT (occurrence: US)
  Receive Date: 20160219
  Receipt Date: 20160219
  Transmission Date: 20160526
  Serious: No
  Sender: FDA-Public Use
  Company Number: IT-PERNIX THERAPEUTICS-2015PT000272

PATIENT

DRUGS (1)
  1. ISOCEF [Suspect]
     Active Substance: CEFTIBUTEN
     Indication: OTITIS MEDIA
     Dosage: 5 MG, DAILY
     Route: 048
     Dates: start: 20141214, end: 20141214

REACTIONS (1)
  - Urticaria [Recovering/Resolving]

NARRATIVE: CASE EVENT DATE: 20141214
